FAERS Safety Report 13599033 (Version 2)
Quarter: 2017Q2

REPORT INFORMATION
  Report Type: Spontaneous
  Country: CA (occurrence: CA)
  Receive Date: 20170531
  Receipt Date: 20170608
  Transmission Date: 20170830
  Serious: No
  Sender: FDA-Public Use
  Company Number: CA-MEDA-2017050100

PATIENT
  Sex: Male

DRUGS (2)
  1. CANNABIS OILS [Suspect]
     Active Substance: CANNABIS SATIVA SEED OIL
     Indication: ANALGESIC THERAPY
     Route: 048
     Dates: start: 201703
  2. CESAMET [Suspect]
     Active Substance: NABILONE
     Indication: ANALGESIC THERAPY
     Dosage: THREE TABLETS AT ONCE IN THE MORNING
     Dates: start: 201702

REACTIONS (2)
  - Dizziness [Not Recovered/Not Resolved]
  - Off label use [Not Recovered/Not Resolved]

NARRATIVE: CASE EVENT DATE: 201702
